FAERS Safety Report 8153672-2 (Version None)
Quarter: 2012Q1

REPORT INFORMATION
  Report Type: 
  Country: None (occurrence: None)
  Receive Date: 20120215
  Receipt Date: 20120202
  Transmission Date: 20120608
  Serious: Yes (Other)
  Sender: FDA-Public Use
  Company Number: 1201-011

PATIENT
  Age: 76 Year
  Sex: Female

DRUGS (6)
  1. TRUSOPT [Concomitant]
  2. EYLEA [Suspect]
     Indication: AGE-RELATED MACULAR DEGENERATION
     Dosage: 2 MG, INTRAVITREAL
     Dates: start: 20111216
  3. COUMDAIN (WARFARIN SODIUM) [Concomitant]
  4. FLAXSEED (LINUM USITATISSIMUM SEED OIL) [Concomitant]
  5. LUMIGAN [Concomitant]
  6. PRESERVISION (OCUVITE /01762701/) [Concomitant]

REACTIONS (10)
  - EMBOLISM [None]
  - ANXIETY [None]
  - IRITIS [None]
  - VITREOUS FLOATERS [None]
  - RETINAL DISORDER [None]
  - EYE HAEMORRHAGE [None]
  - ANTERIOR CHAMBER FLARE [None]
  - OCULAR HYPERAEMIA [None]
  - VITREOUS OPACITIES [None]
  - EYE DISORDER [None]
